FAERS Safety Report 4642435-8 (Version None)
Quarter: 2005Q2

REPORT INFORMATION
  Report Type: 
  Country: None (occurrence: None)
  Receive Date: 20050420
  Receipt Date: 20050406
  Transmission Date: 20051028
  Serious: Yes (Death)
  Sender: FDA-Public Use
  Company Number: FR_050406208

PATIENT
  Age: 57 Year
  Sex: Male

DRUGS (4)
  1. XIGRIS [Suspect]
     Indication: SEPTIC SHOCK
     Dosage: 24 MG/KG HOUR
     Dates: start: 20050331, end: 20050403
  2. HYDROCORTISONE [Concomitant]
  3. ROCEPHIN [Concomitant]
  4. HEPARIN [Concomitant]

REACTIONS (2)
  - BRAIN OEDEMA [None]
  - MENINGORRHAGIA [None]
